FAERS Safety Report 7007401-6 (Version None)
Quarter: 2010Q3

REPORT INFORMATION
  Report Type: 
  Country: None (occurrence: None)
  Receive Date: 20100922
  Receipt Date: 20100910
  Transmission Date: 20110219
  Serious: Yes (Death, Hospitalization)
  Sender: FDA-Public Use
  Company Number: DE-SANOFI-AVENTIS-2010SA054524

PATIENT
  Age: 67 Year
  Sex: Male

DRUGS (5)
  1. OXALIPLATIN [Suspect]
     Indication: METASTATIC GASTRIC CANCER
     Route: 042
     Dates: start: 20100809, end: 20100809
  2. XELODA [Suspect]
     Indication: METASTATIC GASTRIC CANCER
     Route: 048
     Dates: start: 20100719, end: 20100813
  3. EPIRUBICIN [Suspect]
     Indication: GASTRIC CANCER
     Route: 042
     Dates: start: 20100809, end: 20100809
  4. ACYCLOVIR [Concomitant]
     Indication: HERPES SIMPLEX
     Dates: start: 20100729, end: 20100813
  5. ASPIRIN [Concomitant]

REACTIONS (7)
  - ABDOMINAL PAIN [None]
  - COLITIS [None]
  - DIARRHOEA [None]
  - EMBOLIC STROKE [None]
  - ENTERITIS [None]
  - LEUKOPENIA [None]
  - NEUTROPENIA [None]
